FAERS Safety Report 10434344 (Version 1)
Quarter: 2014Q3

REPORT INFORMATION
  Report Type: Report from Study
  Country: BR (occurrence: BR)
  Receive Date: 20140905
  Receipt Date: 20140905
  Transmission Date: 20150326
  Serious: Yes (Death, Other)
  Sender: FDA-Public Use
  Company Number: PHHY2014BR112525

PATIENT
  Sex: Female

DRUGS (3)
  1. EXELON PATCH [Suspect]
     Active Substance: RIVASTIGMINE
     Indication: DEMENTIA ALZHEIMER^S TYPE
     Dosage: 4.6 MG, QD (5 CM2)
     Route: 062
     Dates: start: 20131002, end: 201311
  2. EXELON PATCH [Suspect]
     Active Substance: RIVASTIGMINE
     Dosage: 9.5 MG, QD (10 CM2)
     Route: 062
     Dates: start: 201311
  3. CLOPIDOGREL [Concomitant]
     Active Substance: CLOPIDOGREL BISULFATE
     Indication: ISCHAEMIC HEART DISEASE PROPHYLAXIS
     Dosage: 1 DF, DAILY

REACTIONS (2)
  - Cardiac arrest [Fatal]
  - Parkinson^s disease [Unknown]
